FAERS Safety Report 18682731 (Version 5)
Quarter: 2025Q1

REPORT INFORMATION
  Report Type: Report from Study
  Country: CA (occurrence: CA)
  Receive Date: 20201230
  Receipt Date: 20250125
  Transmission Date: 20250409
  Serious: Yes (Other)
  Sender: TAKEDA
  Company Number: CA-TAKEDA-2020TUS030046

PATIENT
  Age: 29 Year
  Sex: Female

DRUGS (21)
  1. VEDOLIZUMAB [Suspect]
     Active Substance: VEDOLIZUMAB
     Indication: Crohn^s disease
  2. VEDOLIZUMAB [Suspect]
     Active Substance: VEDOLIZUMAB
  3. VEDOLIZUMAB [Suspect]
     Active Substance: VEDOLIZUMAB
     Dosage: 300 MILLIGRAM, Q4WEEKS
     Dates: start: 20210511
  4. VEDOLIZUMAB [Suspect]
     Active Substance: VEDOLIZUMAB
     Dosage: 300 MILLIGRAM, Q4WEEKS
  5. VEDOLIZUMAB [Suspect]
     Active Substance: VEDOLIZUMAB
     Dosage: 300 MILLIGRAM, Q4WEEKS
  6. VEDOLIZUMAB [Suspect]
     Active Substance: VEDOLIZUMAB
     Dosage: 300 MILLIGRAM, Q4WEEKS
  7. MESALAMINE [Concomitant]
     Active Substance: MESALAMINE
  8. METHOTREXATE [Concomitant]
     Active Substance: METHOTREXATE
  9. SERTRALINE [Concomitant]
     Active Substance: SERTRALINE HYDROCHLORIDE
  10. OMEGA 3 [Concomitant]
     Active Substance: CAPSAICIN
  11. CRANBERRY [Concomitant]
     Active Substance: CRANBERRY
  12. FERROUS SULFATE [Concomitant]
     Active Substance: FERROUS SULFATE
  13. MESALAMINE [Concomitant]
     Active Substance: MESALAMINE
  14. SOLU-MEDROL [Concomitant]
     Active Substance: METHYLPREDNISOLONE SODIUM SUCCINATE
  15. VITAMIN B12 [Concomitant]
     Active Substance: CYANOCOBALAMIN
  16. VITAMIN D [Concomitant]
     Active Substance: VITAMIN D NOS
  17. ATIVAN [Concomitant]
     Active Substance: LORAZEPAM
  18. ZOPICLONE [Concomitant]
     Active Substance: ZOPICLONE
  19. METHADONE [Concomitant]
     Active Substance: METHADONE HYDROCHLORIDE
  20. ENTOCORT [Concomitant]
     Active Substance: BUDESONIDE
  21. VANCOMYCIN [Concomitant]
     Active Substance: VANCOMYCIN

REACTIONS (7)
  - Vein rupture [Recovered/Resolved]
  - Poor venous access [Unknown]
  - Oxygen saturation decreased [Unknown]
  - Vascular access site pain [Unknown]
  - Off label use [Unknown]
  - Heart rate increased [Unknown]
  - Blood pressure increased [Unknown]

NARRATIVE: CASE EVENT DATE: 20200708
